FAERS Safety Report 14564192 (Version 2)
Quarter: 2018Q1

REPORT INFORMATION
  Report Type: Spontaneous
  Country: JP (occurrence: JP)
  Receive Date: 20180222
  Receipt Date: 20180320
  Transmission Date: 20180509
  Serious: No
  Sender: FDA-Public Use
  Company Number: JP-MYLANLABS-2018M1012539

PATIENT
  Age: 8 Decade
  Sex: Female

DRUGS (2)
  1. CLARITHROMYCIN MYLAN [Suspect]
     Active Substance: CLARITHROMYCIN
     Indication: PHARYNGITIS
     Dosage: 200 MG, BID
     Route: 048
     Dates: start: 20180206
  2. MUCODYNE [Concomitant]
     Active Substance: CARBOCYSTEINE
     Indication: PHARYNGITIS
     Dosage: UNK
     Dates: start: 20180206

REACTIONS (2)
  - Oedema [Unknown]
  - Drug eruption [Unknown]

NARRATIVE: CASE EVENT DATE: 20180207
